FAERS Safety Report 8330852-4 (Version None)
Quarter: 2012Q2

REPORT INFORMATION
  Report Type: 
  Country: None (occurrence: None)
  Receive Date: 20120502
  Receipt Date: 20120402
  Transmission Date: 20120825
  Serious: No
  Sender: FDA-Public Use
  Company Number: US-AMGEN-USASP2012020885

PATIENT
  Age: 24 Year
  Sex: Female

DRUGS (1)
  1. ENBREL [Suspect]
     Indication: PSORIASIS
     Dosage: 50 MG, 2 TIMES/WK
     Dates: start: 20120328

REACTIONS (5)
  - COUGH [None]
  - FLUSHING [None]
  - HYPERHIDROSIS [None]
  - PYREXIA [None]
  - OROPHARYNGEAL PAIN [None]
